FAERS Safety Report 13984596 (Version 1)
Quarter: 2017Q3

REPORT INFORMATION
  Report Type: Spontaneous
  Country: US (occurrence: US)
  Receive Date: 20170918
  Receipt Date: 20170918
  Transmission Date: 20171128
  Serious: No
  Sender: FDA-Public Use
  Company Number: US-BAYER-2017-178450

PATIENT

DRUGS (1)
  1. MIRALAX [Suspect]
     Active Substance: POLYETHYLENE GLYCOL 3350
     Dosage: UNK

REACTIONS (5)
  - Faeces soft [Unknown]
  - Defaecation urgency [Unknown]
  - Abnormal faeces [Unknown]
  - Abdominal adhesions [Unknown]
  - Frequent bowel movements [Unknown]
